FAERS Safety Report 23115050 (Version 3)
Quarter: 2023Q4

REPORT INFORMATION
  Report Type: Spontaneous
  Country: US (occurrence: None)
  Receive Date: 20231027
  Receipt Date: 20231215
  Transmission Date: 20240110
  Serious: Yes (Other)
  Sender: FDA-Public Use
  Company Number: 2023A238671

PATIENT
  Age: 71 Year
  Sex: Male

DRUGS (1)
  1. CALQUENCE [Suspect]
     Active Substance: ACALABRUTINIB
     Indication: Chronic lymphocytic leukaemia
     Route: 048
     Dates: start: 202201

REACTIONS (16)
  - Haemorrhage [Recovered/Resolved]
  - Arthralgia [Unknown]
  - Myalgia [Unknown]
  - Pain [Unknown]
  - White blood cell count increased [Unknown]
  - Gait disturbance [Unknown]
  - Balance disorder [Unknown]
  - Decreased activity [Not Recovered/Not Resolved]
  - Symptom recurrence [Unknown]
  - Weight bearing difficulty [Unknown]
  - COVID-19 [Unknown]
  - Contusion [Not Recovered/Not Resolved]
  - Fatigue [Unknown]
  - Asthenia [Unknown]
  - Sinus disorder [Unknown]
  - Haematoma [Recovered/Resolved]

NARRATIVE: CASE EVENT DATE: 20230501
